FAERS Safety Report 13126998 (Version 1)
Quarter: 2017Q1

REPORT INFORMATION
  Report Type: Spontaneous
  Country: US (occurrence: US)
  Receive Date: 20170118
  Receipt Date: 20170118
  Transmission Date: 20170428
  Serious: No
  Sender: FDA-Public Use
  Company Number: US-ROCHE-1814970

PATIENT
  Age: 33 Year
  Sex: Female

DRUGS (2)
  1. LENALIDOMIDE [Suspect]
     Active Substance: LENALIDOMIDE
     Indication: HODGKIN^S DISEASE LYMPHOCYTE PREDOMINANCE TYPE STAGE UNSPECIFIED
     Route: 048
  2. RITUXIMAB [Suspect]
     Active Substance: RITUXIMAB
     Indication: HODGKIN^S DISEASE LYMPHOCYTE PREDOMINANCE TYPE STAGE UNSPECIFIED
     Route: 042

REACTIONS (1)
  - Neutropenia [Unknown]
